FAERS Safety Report 5333052-5 (Version None)
Quarter: 2007Q2

REPORT INFORMATION
  Report Type: 
  Country: None (occurrence: None)
  Receive Date: 20070521
  Receipt Date: 20070521
  Transmission Date: 20071010
  Serious: No
  Sender: FDA-Public Use
  Company Number: None

PATIENT
  Age: 37 Year
  Sex: Female
  Weight: 47.1741 kg

DRUGS (2)
  1. SYRONYX [Suspect]
     Indication: CONTRACEPTION
     Dosage: 1 TAB PO QD
     Route: 048
     Dates: start: 20060925, end: 20061025
  2. SYRONYX [Suspect]
     Indication: MENSTRUAL DISORDER
     Dosage: 1 TAB PO QD
     Route: 048
     Dates: start: 20060925, end: 20061025

REACTIONS (2)
  - EYE SWELLING [None]
  - PHARMACEUTICAL PRODUCT COMPLAINT [None]
